FAERS Safety Report 6983963-X (Version None)
Quarter: 2010Q3

REPORT INFORMATION
  Report Type: 
  Country: None (occurrence: None)
  Receive Date: 20100915
  Receipt Date: 20090616
  Transmission Date: 20110219
  Serious: Yes (Other)
  Sender: FDA-Public Use
  Company Number: US-WYE-H09073509

PATIENT
  Sex: Female

DRUGS (4)
  1. PRISTIQ [Suspect]
     Indication: DEPRESSION
     Route: 048
     Dates: start: 20081001
  2. ZYRTEC [Concomitant]
     Dosage: UNKNOWN
  3. PRILOSEC [Concomitant]
     Dosage: UNKNOWN
  4. LISDEXAMFETAMINE DIMESYLATE (VYVANSE) [Concomitant]
     Dosage: UNKNOWN

REACTIONS (3)
  - CONDITION AGGRAVATED [None]
  - HYPERTENSION [None]
  - PETECHIAE [None]
